FAERS Safety Report 19131862 (Version 1)
Quarter: 2021Q2

REPORT INFORMATION
  Report Type: Spontaneous
  Country: US (occurrence: US)
  Receive Date: 20210414
  Receipt Date: 20210414
  Transmission Date: 20210717
  Serious: No
  Sender: FDA-Public Use
  Company Number: US-ASTRAZENECA-2021A178470

PATIENT
  Sex: Female

DRUGS (2)
  1. FASENRA [Suspect]
     Active Substance: BENRALIZUMAB
     Indication: ASTHMA
     Route: 058
     Dates: start: 20210201
  2. MODERNA COVID?19 VACCINE [Concomitant]
     Active Substance: CX-024414
     Dosage: ONCE/SINGLE ADMINISTRATION
     Route: 065
     Dates: start: 20210311

REACTIONS (4)
  - Lymphadenopathy [Not Recovered/Not Resolved]
  - Pruritus [Unknown]
  - Dyspnoea [Not Recovered/Not Resolved]
  - Oropharyngeal pain [Unknown]
